FAERS Safety Report 5958960-3 (Version None)
Quarter: 2008Q4

REPORT INFORMATION
  Report Type: 
  Country: None (occurrence: None)
  Receive Date: 20081118
  Receipt Date: 20081110
  Transmission Date: 20090506
  Serious: Yes (Death, Hospitalization)
  Sender: FDA-Public Use
  Company Number: WAES 0811USA01338

PATIENT
  Age: 53 Year
  Sex: Female
  Weight: 64.8644 kg

DRUGS (5)
  1. DECADRON [Suspect]
     Indication: BRAIN OEDEMA
     Dosage: 4 MG/BID/PO
     Route: 048
     Dates: start: 20080731
  2. DEPAKOTE [Concomitant]
  3. DEPAKOTE [Concomitant]
  4. TEMODAR [Suspect]
     Indication: GLIOBLASTOMA
     Dosage: 3960  MG/DAILY/PO
     Route: 048
     Dates: start: 20080811, end: 20080903
  5. TEMODAR [Suspect]
     Indication: GLIOBLASTOMA
     Dosage: 3960  MG/DAILY/PO
     Route: 048
     Dates: start: 20071210

REACTIONS (17)
  - CONFUSIONAL STATE [None]
  - CONVULSION [None]
  - ENCEPHALOMALACIA [None]
  - ENCEPHALOPATHY [None]
  - FALL [None]
  - HYPOTENSION [None]
  - INCORRECT DOSE ADMINISTERED [None]
  - LEUKOPENIA [None]
  - LUMBAR VERTEBRAL FRACTURE [None]
  - LUNG INFILTRATION [None]
  - MEDICATION ERROR [None]
  - MENTAL IMPAIRMENT [None]
  - PLATELET COUNT DECREASED [None]
  - PNEUMOCYSTIS JIROVECI INFECTION [None]
  - PNEUMONIA ASPIRATION [None]
  - SEPSIS [None]
  - URINARY INCONTINENCE [None]
